FAERS Safety Report 17931720 (Version 4)
Quarter: 2020Q4

REPORT INFORMATION
  Report Type: Report from Study
  Country: None (occurrence: US)
  Receive Date: 20200624
  Receipt Date: 20201127
  Transmission Date: 20210113
  Serious: Yes (Hospitalization, Other)
  Sender: FDA-Public Use
  Company Number: US-ABBVIE-20K-163-3449268-00

PATIENT
  Sex: Male

DRUGS (6)
  1. HUMIRA [Suspect]
     Active Substance: ADALIMUMAB
     Route: 058
     Dates: start: 20201101
  2. PREDNISONE. [Suspect]
     Active Substance: PREDNISONE
     Indication: PRODUCT USED FOR UNKNOWN INDICATION
     Route: 065
  3. PREDNISONE. [Suspect]
     Active Substance: PREDNISONE
     Route: 065
     Dates: start: 2020
  4. PREDNISONE. [Suspect]
     Active Substance: PREDNISONE
     Dosage: DOSE REDUCED
     Route: 065
  5. METFORMIN [Concomitant]
     Active Substance: METFORMIN HYDROCHLORIDE
     Indication: PRODUCT USED FOR UNKNOWN INDICATION
  6. HUMIRA [Suspect]
     Active Substance: ADALIMUMAB
     Indication: RHEUMATOID ARTHRITIS
     Route: 058
     Dates: start: 20200501, end: 20200905

REACTIONS (33)
  - Gait disturbance [Not Recovered/Not Resolved]
  - Weight bearing difficulty [Not Recovered/Not Resolved]
  - Depression [Unknown]
  - Headache [Not Recovered/Not Resolved]
  - Blood test abnormal [Unknown]
  - Polymyalgia rheumatica [Unknown]
  - Basedow^s disease [Unknown]
  - Impaired self-care [Not Recovered/Not Resolved]
  - Discomfort [Not Recovered/Not Resolved]
  - Cartilage atrophy [Unknown]
  - Mass [Unknown]
  - Injection site indentation [Unknown]
  - Loss of personal independence in daily activities [Not Recovered/Not Resolved]
  - Hypoaesthesia [Not Recovered/Not Resolved]
  - Paraesthesia [Unknown]
  - Arthralgia [Unknown]
  - Musculoskeletal discomfort [Unknown]
  - Myasthenia gravis [Not Recovered/Not Resolved]
  - Shoulder arthroplasty [Unknown]
  - Rotator cuff syndrome [Not Recovered/Not Resolved]
  - Diabetes mellitus [Not Recovered/Not Resolved]
  - Joint stiffness [Unknown]
  - Liver function test increased [Unknown]
  - Injection site extravasation [Unknown]
  - Grip strength decreased [Not Recovered/Not Resolved]
  - Impaired work ability [Unknown]
  - General physical health deterioration [Unknown]
  - Anxiety [Unknown]
  - Injection site bruising [Recovered/Resolved]
  - Joint swelling [Not Recovered/Not Resolved]
  - Arthropathy [Not Recovered/Not Resolved]
  - Pain [Not Recovered/Not Resolved]
  - Dysphagia [Unknown]

NARRATIVE: CASE EVENT DATE: 2020
